FAERS Safety Report 7954337-X (Version None)
Quarter: 2011Q4

REPORT INFORMATION
  Report Type: 
  Country: None (occurrence: None)
  Receive Date: 20111202
  Receipt Date: 20111129
  Transmission Date: 20120403
  Serious: Yes (Hospitalization)
  Sender: FDA-Public Use
  Company Number: US-TEVA-311317USA

PATIENT
  Sex: Female

DRUGS (1)
  1. WARFARIN SODIUM [Suspect]

REACTIONS (2)
  - PRURITUS [None]
  - INFECTION [None]
